FAERS Safety Report 17433046 (Version 3)
Quarter: 2021Q1

REPORT INFORMATION
  Report Type: Other
  Country: US (occurrence: US)
  Receive Date: 20200219
  Receipt Date: 20210104
  Transmission Date: 20210419
  Serious: Yes (Hospitalization)
  Sender: FDA-Public Use
  Company Number: US-ROCHE-2545308

PATIENT
  Age: 45 Year
  Sex: Female
  Weight: 64.47 kg

DRUGS (23)
  1. ABILIFY [Concomitant]
     Active Substance: ARIPIPRAZOLE
     Indication: DEPRESSION
     Dosage: ONGOING YES
     Route: 048
  2. LEVSIN [Concomitant]
     Active Substance: HYOSCYAMINE SULFATE
     Indication: BLADDER SPASM
     Dosage: ONGOING YES
     Route: 048
  3. ASPIRIN. [Concomitant]
     Active Substance: ASPIRIN
     Indication: CEREBROVASCULAR ACCIDENT PROPHYLAXIS
     Dosage: ONGOING NO
     Route: 048
  4. ASPIRIN. [Concomitant]
     Active Substance: ASPIRIN
     Route: 048
     Dates: start: 20201005
  5. FLEXERIL [Concomitant]
     Active Substance: CYCLOBENZAPRINE HYDROCHLORIDE
  6. LINZESS [Concomitant]
     Active Substance: LINACLOTIDE
  7. CYMBALTA [Concomitant]
     Active Substance: DULOXETINE HYDROCHLORIDE
     Indication: NEURALGIA
  8. BACLOFEN. [Concomitant]
     Active Substance: BACLOFEN
     Indication: TREMOR
  9. OCREVUS [Suspect]
     Active Substance: OCRELIZUMAB
     Indication: RELAPSING-REMITTING MULTIPLE SCLEROSIS
     Dosage: ONGOING YES?DATE OF TREATMENT: 13/AUG/2018, 30/JAN/2019, 30/JUL/2019
     Route: 042
     Dates: start: 20180730
  10. OCREVUS [Suspect]
     Active Substance: OCRELIZUMAB
     Indication: RELAPSING MULTIPLE SCLEROSIS
  11. JANUMET XR [Concomitant]
     Active Substance: METFORMIN HYDROCHLORIDE\SITAGLIPTIN PHOSPHATE
     Indication: DIABETES MELLITUS
     Dosage: 100/1000 MG, ONGOING YES
     Route: 048
  12. SIMVASTATIN. [Concomitant]
     Active Substance: SIMVASTATIN
     Indication: BLOOD CHOLESTEROL INCREASED
     Route: 048
  13. DETROL LA [Concomitant]
     Active Substance: TOLTERODINE TARTRATE
     Indication: BLADDER SPASM
     Route: 048
  14. CYMBALTA [Concomitant]
     Active Substance: DULOXETINE HYDROCHLORIDE
     Indication: DEPRESSION
     Dosage: ONGOING YES
     Route: 048
  15. GABAPENTIN. [Concomitant]
     Active Substance: GABAPENTIN
     Indication: NEURALGIA
     Route: 048
  16. LISINOPRIL. [Concomitant]
     Active Substance: LISINOPRIL
     Indication: HYPERTENSION
     Dosage: ONGOING YES
     Route: 048
     Dates: start: 20201016
  17. LISINOPRIL. [Concomitant]
     Active Substance: LISINOPRIL
     Route: 048
     Dates: start: 20201007, end: 20201016
  18. SINGULAIR [Concomitant]
     Active Substance: MONTELUKAST SODIUM
     Route: 048
  19. BACLOFEN. [Concomitant]
     Active Substance: BACLOFEN
     Indication: MUSCLE SPASMS
     Route: 048
  20. XANAX [Concomitant]
     Active Substance: ALPRAZOLAM
     Indication: NERVOUSNESS
     Route: 048
  21. FLONASE [Concomitant]
     Active Substance: FLUTICASONE PROPIONATE
     Dosage: NASAL SPRAY , ONGOING YES
     Route: 045
  22. MEDROL [Concomitant]
     Active Substance: METHYLPREDNISOLONE
  23. PROTONIX [Concomitant]
     Active Substance: PANTOPRAZOLE SODIUM
     Indication: HIATUS HERNIA
     Route: 048

REACTIONS (6)
  - Pneumonia [Not Recovered/Not Resolved]
  - Chest discomfort [Not Recovered/Not Resolved]
  - Headache [Not Recovered/Not Resolved]
  - Cerebrovascular accident [Not Recovered/Not Resolved]
  - Sepsis [Recovered/Resolved]
  - Abdominal pain [Not Recovered/Not Resolved]

NARRATIVE: CASE EVENT DATE: 201911
